FAERS Safety Report 15219997 (Version 2)
Quarter: 2018Q3

REPORT INFORMATION
  Report Type: Spontaneous
  Country: US (occurrence: US)
  Receive Date: 20180731
  Receipt Date: 20180816
  Transmission Date: 20181010
  Serious: No
  Sender: FDA-Public Use
  Company Number: US-PFIZER INC-2017234733

PATIENT
  Age: 16 Year
  Sex: Male

DRUGS (4)
  1. GENOTROPIN [Suspect]
     Active Substance: SOMATROPIN
     Dosage: UNK (ALT DOSE OF 3.2 MG AND 3.4 MG 7 DAYS A WEEK)
     Dates: start: 20170909
  2. GENOTROPIN [Suspect]
     Active Substance: SOMATROPIN
     Indication: HYPOTHALAMO-PITUITARY DISORDER
     Dosage: 3.3 MG, UNK
     Dates: start: 20170909
  3. GENOTROPIN [Suspect]
     Active Substance: SOMATROPIN
     Indication: CHARGE SYNDROME
     Dosage: ALTERNATING 3.2 MG AND 3.4 MG, DAILY
  4. GENOTROPIN [Suspect]
     Active Substance: SOMATROPIN
     Dosage: 3.3 MG, DAILY

REACTIONS (5)
  - Blood creatinine decreased [Unknown]
  - Product use in unapproved indication [Unknown]
  - Drug prescribing error [Unknown]
  - Blood triglycerides increased [Unknown]
  - Blood alkaline phosphatase increased [Unknown]

NARRATIVE: CASE EVENT DATE: 20180107
